FAERS Safety Report 8028828-X (Version None)
Quarter: 2012Q1

REPORT INFORMATION
  Report Type: 
  Country: None (occurrence: None)
  Receive Date: 20120106
  Receipt Date: 20111230
  Transmission Date: 20120608
  Serious: Yes (Other)
  Sender: FDA-Public Use
  Company Number: CHPA2011DE018950

PATIENT
  Sex: Female

DRUGS (1)
  1. CLEMASTINE FUMARATE [Suspect]
     Indication: URTICARIA
     Dosage: UNK, UNK
     Route: 048

REACTIONS (2)
  - CARDIAC DISORDER [None]
  - FATIGUE [None]
